FAERS Safety Report 17356384 (Version 1)
Quarter: 2020Q1

REPORT INFORMATION
  Report Type: Spontaneous
  Country: JP (occurrence: JP)
  Receive Date: 20200131
  Receipt Date: 20200131
  Transmission Date: 20200409
  Serious: Yes (Death, Other)
  Sender: FDA-Public Use
  Company Number: JP-SHIRE-JP202003813

PATIENT

DRUGS (1)
  1. FOSRENOL [Suspect]
     Active Substance: LANTHANUM CARBONATE
     Indication: PRODUCT USED FOR UNKNOWN INDICATION
     Route: 065

REACTIONS (4)
  - Ventricular fibrillation [Unknown]
  - Ventricular tachycardia [Unknown]
  - Appendicitis [Unknown]
  - Constipation [Fatal]

NARRATIVE: CASE EVENT DATE: 20200110
